FAERS Safety Report 20145419 (Version 1)
Quarter: 2021Q4

REPORT INFORMATION
  Report Type: Spontaneous
  Country: CA (occurrence: CA)
  Receive Date: 20211203
  Receipt Date: 20211203
  Transmission Date: 20220304
  Serious: Yes (Hospitalization, Other)
  Sender: FDA-Public Use
  Company Number: CA-TEVA-2021-CA-1983109

PATIENT
  Age: 52 Year
  Sex: Female

DRUGS (8)
  1. BUDESONIDE [Suspect]
     Active Substance: BUDESONIDE
     Indication: Product used for unknown indication
     Dosage: 1 DOSAGE FORMS DAILY;
     Route: 055
  2. PROGESTERONE [Suspect]
     Active Substance: PROGESTERONE
     Indication: Menopause
     Route: 065
  3. CRINONE [Suspect]
     Active Substance: PROGESTERONE
     Indication: Menopause
     Route: 065
  4. ESTRADIOL BENZOATE [Suspect]
     Active Substance: ESTRADIOL BENZOATE
     Indication: Product used for unknown indication
     Route: 065
  5. LORATADINE [Suspect]
     Active Substance: LORATADINE
     Indication: Product used for unknown indication
     Route: 048
  6. PRASTERONE [Suspect]
     Active Substance: PRASTERONE
     Indication: Product used for unknown indication
     Route: 067
  7. CLARITIN [Concomitant]
     Active Substance: LORATADINE
  8. GLICLAZIDE [Concomitant]
     Active Substance: GLICLAZIDE

REACTIONS (10)
  - Butterfly rash [Unknown]
  - Cellulitis [Unknown]
  - Feeling hot [Unknown]
  - Head discomfort [Unknown]
  - Headache [Unknown]
  - Periorbital oedema [Unknown]
  - Photosensitivity reaction [Unknown]
  - Rash [Unknown]
  - Swelling face [Unknown]
  - Tinnitus [Unknown]
